FAERS Safety Report 9775760 (Version 1)
Quarter: 2013Q4

REPORT INFORMATION
  Report Type: Spontaneous
  Country: FR (occurrence: FR)
  Receive Date: 20131220
  Receipt Date: 20131220
  Transmission Date: 20140711
  Serious: Yes (Other)
  Sender: FDA-Public Use
  Company Number: FR-BRISTOL-MYERS SQUIBB COMPANY-19927698

PATIENT
  Age: 45 Year
  Sex: Male

DRUGS (7)
  1. GLUCOPHAGE [Suspect]
     Route: 048
     Dates: end: 20130614
  2. REMICADE [Suspect]
     Dosage: 9OCT12-14JUN13-248D?5SEP13-20SEP13-15D
     Route: 042
     Dates: start: 20121009
  3. STAGID [Concomitant]
     Indication: DIABETES MELLITUS
     Dates: start: 201308
  4. NOVONORM [Concomitant]
  5. CRESTOR [Concomitant]
     Dates: start: 201303
  6. LYRICA [Concomitant]
  7. DIAMICRON [Concomitant]
     Dates: end: 201308

REACTIONS (2)
  - Myalgia [Recovering/Resolving]
  - Paraesthesia [Recovering/Resolving]
